FAERS Safety Report 6556581-5 (Version None)
Quarter: 2010Q1

REPORT INFORMATION
  Report Type: 
  Country: None (occurrence: None)
  Receive Date: 20100128
  Receipt Date: 20100118
  Transmission Date: 20100710
  Serious: Yes (Life-Threatening, Other)
  Sender: FDA-Public Use
  Company Number: AU-WYE-G05353110

PATIENT

DRUGS (1)
  1. EFFEXOR XR [Suspect]
     Dosage: 500MG DAILY AT HIGHEST, REDUCED TO 150MG AND 112.5MG

REACTIONS (6)
  - AGGRESSION [None]
  - AGITATION [None]
  - COGNITIVE DISORDER [None]
  - DRUG WITHDRAWAL SYNDROME [None]
  - SEROTONIN SYNDROME [None]
  - SUICIDAL IDEATION [None]
